FAERS Safety Report 9665780 (Version 1)
Quarter: 2013Q4

REPORT INFORMATION
  Report Type: Spontaneous
  Country: US (occurrence: US)
  Receive Date: 20131104
  Receipt Date: 20131104
  Transmission Date: 20140711
  Serious: No
  Sender: FDA-Public Use
  Company Number: US-009507513-1310USA014152

PATIENT
  Age: 4 Year
  Sex: Female

DRUGS (7)
  1. ELOCON [Suspect]
     Indication: DERMATITIS
  2. ORGATRAX [Suspect]
  3. PREDNISOLONE [Concomitant]
  4. CLOBETASOL PROPIONATE [Concomitant]
  5. FLUOCINOLONE ACETONIDE [Concomitant]
  6. MOMETASONE FUROATE [Concomitant]
  7. CETRIZINE [Concomitant]

REACTIONS (1)
  - Drug ineffective [Unknown]
